FAERS Safety Report 17394277 (Version 2)
Quarter: 2020Q1

REPORT INFORMATION
  Report Type: Spontaneous
  Country: CH (occurrence: CH)
  Receive Date: 20200210
  Receipt Date: 20200214
  Transmission Date: 20200409
  Serious: Yes (Hospitalization)
  Sender: FDA-Public Use
  Company Number: CH-PFIZER INC-2020057228

PATIENT
  Age: 51 Year
  Sex: Female
  Weight: 70 kg

DRUGS (4)
  1. TIROSINT [Concomitant]
     Active Substance: LEVOTHYROXINE SODIUM
     Dosage: 100 MICROGRAM, QD
     Route: 048
  2. PANTOZOL [Suspect]
     Active Substance: PANTOPRAZOLE SODIUM
     Indication: HELICOBACTER GASTRITIS
     Dosage: UNK UNK, BID
     Route: 048
     Dates: start: 20200102, end: 20200109
  3. AUGMENTIN [Suspect]
     Active Substance: AMOXICILLIN\CLAVULANATE POTASSIUM
     Indication: HELICOBACTER GASTRITIS
     Dosage: 1 GTT DROPS, BID
     Route: 048
     Dates: start: 20200102, end: 20200109
  4. TAVANIC [Suspect]
     Active Substance: LEVOFLOXACIN
     Indication: HELICOBACTER GASTRITIS
     Dosage: 500 MILLIGRAM, QD
     Route: 048
     Dates: start: 20200102, end: 20200109

REACTIONS (4)
  - Hypersensitivity [Recovered/Resolved]
  - Urticaria [Recovered/Resolved]
  - Pruritus [Recovered/Resolved]
  - Angioedema [Recovered/Resolved]

NARRATIVE: CASE EVENT DATE: 20200109
